FAERS Safety Report 8846037 (Version 1)
Quarter: 2012Q4

REPORT INFORMATION
  Report Type: Report from Study
  Country: RU (occurrence: RU)
  Receive Date: 20121017
  Receipt Date: 20121017
  Transmission Date: 20130627
  Serious: Yes (Other)
  Sender: FDA-Public Use
  Company Number: RU-ROCHE-1146271

PATIENT
  Age: 57 Year
  Sex: Female

DRUGS (1)
  1. PEG-INTERFERON ALFA 2A [Suspect]
     Indication: HEPATITIS C
     Route: 058
     Dates: start: 2011

REACTIONS (5)
  - Renal disorder [Unknown]
  - Cardiac disorder [Unknown]
  - Arthropathy [Unknown]
  - Nervous system disorder [Not Recovered/Not Resolved]
  - Drug ineffective [Unknown]
